FAERS Safety Report 5023220-4 (Version None)
Quarter: 2006Q2

REPORT INFORMATION
  Report Type: 
  Country: None (occurrence: None)
  Receive Date: 20060428
  Receipt Date: 20060103
  Transmission Date: 20061013
  Serious: No
  Sender: FDA-Public Use
  Company Number: 012065

PATIENT
  Age: 45 Year
  Sex: Male
  Weight: 223 kg

DRUGS (13)
  1. PRIALT [Suspect]
     Indication: NEUROPATHY PERIPHERAL
     Dosage: 0.21 UG, ONCE/HOUR, INTRATHECAL
     Route: 037
     Dates: start: 20051207, end: 20051215
  2. PRIALT [Suspect]
     Indication: NEUROPATHY PERIPHERAL
     Dosage: 0.21 UG, ONCE/HOUR, INTRATHECAL
     Route: 037
     Dates: start: 20051215
  3. MORPHINE SULFATE [Concomitant]
  4. LEXAPRO (EXCITALOPRAM OXALATE) [Concomitant]
  5. GABATRIL (TIAGABINE HYDROCHLORIDE) [Concomitant]
  6. DILAUDID [Concomitant]
  7. OXYCONTIN [Concomitant]
  8. ACTOS [Concomitant]
  9. ZYRTEC [Concomitant]
  10. PREVACID [Concomitant]
  11. CLONOPIN [Concomitant]
  12. ENZYME PREPARATIONS [Concomitant]
  13. ESZOPICLONE (ESZOPICLONE) [Concomitant]

REACTIONS (25)
  - ABDOMINAL DISCOMFORT [None]
  - ANXIETY [None]
  - APHASIA [None]
  - ASTHENIA [None]
  - BURNING SENSATION [None]
  - CLAVICLE FRACTURE [None]
  - CONFUSIONAL STATE [None]
  - COORDINATION ABNORMAL [None]
  - DIFFICULTY IN WALKING [None]
  - DIZZINESS [None]
  - DYSARTHRIA [None]
  - FAECAL INCONTINENCE [None]
  - FALL [None]
  - FRACTURE [None]
  - HEADACHE [None]
  - LOCAL SWELLING [None]
  - MALAISE [None]
  - NAUSEA [None]
  - NERVOUSNESS [None]
  - OEDEMA PERIPHERAL [None]
  - PAIN [None]
  - RIB FRACTURE [None]
  - SWELLING FACE [None]
  - URINARY RETENTION [None]
  - WEIGHT INCREASED [None]
